FAERS Safety Report 8120249-4 (Version None)
Quarter: 2012Q1

REPORT INFORMATION
  Report Type: 
  Country: None (occurrence: None)
  Receive Date: 20120207
  Receipt Date: 20120127
  Transmission Date: 20120608
  Serious: Yes (Other)
  Sender: FDA-Public Use
  Company Number: PHHY2012JP009525

PATIENT
  Age: 40 Year
  Sex: Male

DRUGS (2)
  1. STELARA [Suspect]
     Dosage: 45 MG, UNK
     Route: 058
     Dates: start: 20111227
  2. NEORAL [Suspect]
     Indication: PSORIASIS
     Dosage: UNK UKN, UNK
     Route: 048
     Dates: end: 20111101

REACTIONS (1)
  - CHOLECYSTITIS [None]
